FAERS Safety Report 7947002-6 (Version None)
Quarter: 2011Q4

REPORT INFORMATION
  Report Type: 
  Country: None (occurrence: None)
  Receive Date: 20111129
  Receipt Date: 20111116
  Transmission Date: 20120403
  Serious: Yes (Hospitalization)
  Sender: FDA-Public Use
  Company Number: BR-ASTRAZENECA-2011SE67040

PATIENT
  Age: 90 Year
  Sex: Female
  Weight: 60 kg

DRUGS (6)
  1. HALDOL [Concomitant]
     Route: 048
  2. DEPAKENE [Concomitant]
     Route: 048
  3. OMEPRAZOLE [Suspect]
     Dosage: BID
     Route: 048
  4. DIOVAN [Concomitant]
     Route: 048
  5. SEROQUEL [Suspect]
     Indication: DEMENTIA ALZHEIMER'S TYPE
     Route: 048
     Dates: start: 20110401
  6. CLONAZEPAM [Concomitant]
     Route: 048

REACTIONS (4)
  - OFF LABEL USE [None]
  - BONE PAIN [None]
  - DIARRHOEA [None]
  - URINARY TRACT INFECTION [None]
